FAERS Safety Report 13306193 (Version 3)
Quarter: 2017Q3

REPORT INFORMATION
  Report Type: Report from Study
  Country: US (occurrence: US)
  Receive Date: 20170308
  Receipt Date: 20170912
  Transmission Date: 20171127
  Serious: Yes (Hospitalization, Other)
  Sender: FDA-Public Use
  Company Number: US-ARIAD PHARMACEUTICALS, INC-2017US007855

PATIENT
  Sex: Female

DRUGS (3)
  1. ICLUSIG [Suspect]
     Active Substance: PONATINIB
     Dosage: 15 MG, QD
     Route: 048
     Dates: start: 20160304, end: 20170222
  2. ICLUSIG [Suspect]
     Active Substance: PONATINIB
     Indication: CHRONIC MYELOID LEUKAEMIA (IN REMISSION)
     Dosage: UNK
     Route: 048
     Dates: start: 20110406
  3. ICLUSIG [Suspect]
     Active Substance: PONATINIB
     Dosage: 15 MG, QD
     Dates: start: 20170817

REACTIONS (9)
  - Dysphonia [Not Recovered/Not Resolved]
  - Hypoxia [Unknown]
  - Cardiac murmur [Unknown]
  - Pneumonia [Unknown]
  - Pallor [Unknown]
  - Peripheral arterial occlusive disease [Unknown]
  - Musculoskeletal pain [Not Recovered/Not Resolved]
  - Blood creatinine increased [Unknown]
  - Rotator cuff syndrome [Not Recovered/Not Resolved]
